FAERS Safety Report 9990464 (Version 1)
Quarter: 2014Q1

REPORT INFORMATION
  Report Type: Report from Study
  Country: US (occurrence: US)
  Receive Date: 20140310
  Receipt Date: 20140310
  Transmission Date: 20141002
  Serious: No
  Sender: FDA-Public Use
  Company Number: US-ABBVIE-13P-163-1131341-00

PATIENT
  Sex: Female

DRUGS (2)
  1. HUMIRA [Suspect]
     Indication: COLITIS ULCERATIVE
     Dosage: DAY ONE
     Dates: start: 20130803, end: 20130803
  2. HUMIRA [Suspect]
     Dosage: DAY ONE

REACTIONS (1)
  - Haematochezia [Not Recovered/Not Resolved]
